FAERS Safety Report 13903578 (Version 6)
Quarter: 2018Q1

REPORT INFORMATION
  Report Type: Spontaneous
  Country: US (occurrence: US)
  Receive Date: 20170824
  Receipt Date: 20180219
  Transmission Date: 20180508
  Serious: Yes (Hospitalization, Other)
  Sender: FDA-Public Use
  Company Number: US-PFIZER INC-2017365168

PATIENT
  Age: 34 Year
  Sex: Female

DRUGS (2)
  1. XELJANZ XR [Suspect]
     Active Substance: TOFACITINIB CITRATE
     Dosage: 11 MG, UNK
     Dates: start: 201708
  2. XELJANZ XR [Suspect]
     Active Substance: TOFACITINIB CITRATE
     Dosage: 11 MG, UNK

REACTIONS (8)
  - Staphylococcus test positive [Unknown]
  - Myalgia [Unknown]
  - Staphylococcal infection [Unknown]
  - Drug ineffective [Unknown]
  - Cholelithiasis [Unknown]
  - Swelling face [Unknown]
  - Cellulitis [Unknown]
  - Heart rate decreased [Unknown]
